FAERS Safety Report 7487599-6 (Version None)
Quarter: 2011Q2

REPORT INFORMATION
  Report Type: 
  Country: None (occurrence: None)
  Receive Date: 20110518
  Receipt Date: 20101029
  Transmission Date: 20111010
  Serious: No
  Sender: FDA-Public Use
  Company Number: US-AMGEN-USASP2010002450

PATIENT
  Age: 59 Year
  Sex: Female

DRUGS (1)
  1. ENBREL [Suspect]
     Indication: RHEUMATOID ARTHRITIS
     Dosage: 50 MG, QWK
     Dates: start: 20081001

REACTIONS (2)
  - FACIAL OPERATION [None]
  - THERAPEUTIC RESPONSE DECREASED [None]
